FAERS Safety Report 21772274 (Version 1)
Quarter: 2022Q4

REPORT INFORMATION
  Report Type: Spontaneous
  Country: US (occurrence: None)
  Receive Date: 20221223
  Receipt Date: 20221223
  Transmission Date: 20230112
  Serious: Yes (Other)
  Sender: FDA-Public Use
  Company Number: None

PATIENT
  Age: 23 Year
  Sex: Female
  Weight: 45 kg

DRUGS (8)
  1. TRANSDERM SCOP [Suspect]
     Active Substance: SCOPOLAMINE
     Indication: Hyperemesis gravidarum
     Dosage: OTHER QUANTITY : 1 PATCH(ES);?OTHER FREQUENCY : 3 DAYS;?
     Route: 062
     Dates: start: 20221014, end: 20221222
  2. PROMETHAZINE [Concomitant]
     Active Substance: PROMETHAZINE HYDROCHLORIDE
  3. IRON [Concomitant]
     Active Substance: IRON
  4. ZOFRAN [Concomitant]
     Active Substance: ONDANSETRON HYDROCHLORIDE
  5. ACYCLOVIR [Concomitant]
     Active Substance: ACYCLOVIR
  6. VITAMIN D3 [Concomitant]
     Active Substance: CHOLECALCIFEROL
  7. CALCIUM [Concomitant]
     Active Substance: CALCIUM
  8. prenatal vit [Concomitant]

REACTIONS (2)
  - Device leakage [None]
  - Application site burn [None]

NARRATIVE: CASE EVENT DATE: 20221222
